FAERS Safety Report 17802832 (Version 1)
Quarter: 2020Q2

REPORT INFORMATION
  Report Type: Spontaneous
  Country: US (occurrence: US)
  Receive Date: 20200518
  Receipt Date: 20200518
  Transmission Date: 20200714
  Serious: Yes (Other)
  Sender: FDA-Public Use
  Company Number: None

PATIENT
  Age: 47 Year
  Sex: Female
  Weight: 58.06 kg

DRUGS (5)
  1. XANAX [Concomitant]
     Active Substance: ALPRAZOLAM
  2. VITAMIN D3 [Concomitant]
     Active Substance: CHOLECALCIFEROL
  3. PROBIOTICS [Concomitant]
     Active Substance: PROBIOTICS NOS
  4. GADAVIST [Suspect]
     Active Substance: GADOBUTROL
     Route: 042
  5. HERBS [Concomitant]
     Active Substance: HERBALS

REACTIONS (3)
  - Skin burning sensation [None]
  - Depressed level of consciousness [None]
  - Hypersensitivity [None]

NARRATIVE: CASE EVENT DATE: 20200213
